FAERS Safety Report 8117517-9 (Version None)
Quarter: 2012Q1

REPORT INFORMATION
  Report Type: 
  Country: None (occurrence: None)
  Receive Date: 20120207
  Receipt Date: 20120127
  Transmission Date: 20120608
  Serious: No
  Sender: FDA-Public Use
  Company Number: US-BIOGENIDEC-2010BI041752

PATIENT
  Age: 24 Year
  Sex: Female

DRUGS (2)
  1. TYSABRI [Suspect]
     Indication: MULTIPLE SCLEROSIS
     Route: 042
     Dates: start: 20091030, end: 20100923
  2. TYSABRI [Suspect]
     Route: 042
     Dates: start: 20120125

REACTIONS (3)
  - TREMOR [None]
  - DIZZINESS [None]
  - MEMORY IMPAIRMENT [None]
